FAERS Safety Report 9303755 (Version 4)
Quarter: 2013Q2

REPORT INFORMATION
  Report Type: Spontaneous
  Country: US (occurrence: US)
  Receive Date: 20130522
  Receipt Date: 20130628
  Transmission Date: 20140414
  Serious: Yes (Other)
  Sender: FDA-Public Use
  Company Number: US-GLAXOSMITHKLINE-A1023716A

PATIENT
  Age: 53 Year
  Sex: Female
  Weight: 61.4 kg

DRUGS (3)
  1. POTIGA [Suspect]
     Indication: EPILEPSY
     Dosage: 150MG THREE TIMES PER DAY
     Route: 048
     Dates: start: 20130418, end: 20130515
  2. GABAPENTIN [Suspect]
     Indication: CONVULSION
     Dosage: 100MG THREE TIMES PER DAY
     Route: 048
     Dates: start: 20130326
  3. KEPPRA [Concomitant]
     Indication: CONVULSION
     Dosage: 1500MG TWICE PER DAY
     Route: 048

REACTIONS (9)
  - Complex partial seizures [Recovered/Resolved]
  - Loss of consciousness [Recovered/Resolved]
  - Confusional state [Recovered/Resolved]
  - Irritability [Recovered/Resolved]
  - Crying [Recovered/Resolved]
  - Drug ineffective [Unknown]
  - Headache [Recovered/Resolved]
  - Emotional distress [Recovered/Resolved]
  - Speech disorder [Recovered/Resolved]
